FAERS Safety Report 21971559 (Version 4)
Quarter: 2023Q4

REPORT INFORMATION
  Report Type: Report from Study
  Country: US (occurrence: US)
  Receive Date: 20230209
  Receipt Date: 20231130
  Transmission Date: 20240110
  Serious: Yes (Hospitalization)
  Sender: FDA-Public Use
  Company Number: US-ARGENX-2022-ARGX-US002454

PATIENT

DRUGS (2)
  1. VYVGART [Suspect]
     Active Substance: EFGARTIGIMOD ALFA-FCAB
     Indication: Myasthenia gravis
     Dosage: UNK
     Route: 042
     Dates: start: 20221024
  2. VYVGART [Suspect]
     Active Substance: EFGARTIGIMOD ALFA-FCAB
     Dosage: UNK, 1/WEEK X 4 WEEKS
     Route: 042
     Dates: start: 20230317

REACTIONS (7)
  - Hospitalisation [Unknown]
  - Transient lingual papillitis [Unknown]
  - Frequent bowel movements [Unknown]
  - Malaise [Unknown]
  - Muscular weakness [Unknown]
  - Peripheral swelling [Unknown]
  - Anaemia [Recovering/Resolving]
